FAERS Safety Report 7550131-2 (Version None)
Quarter: 2011Q2

REPORT INFORMATION
  Report Type: 
  Country: None (occurrence: None)
  Receive Date: 20110615
  Receipt Date: 20110531
  Transmission Date: 20111010
  Serious: Yes (Hospitalization)
  Sender: FDA-Public Use
  Company Number: US-JNJFOC-20110601572

PATIENT
  Sex: Female
  Weight: 73.98 kg

DRUGS (4)
  1. HUMIRA [Suspect]
     Indication: ANKYLOSING SPONDYLITIS
     Route: 058
     Dates: start: 20081001, end: 20100201
  2. ENBREL [Suspect]
     Indication: ANKYLOSING SPONDYLITIS
     Route: 058
     Dates: start: 20080601, end: 20080901
  3. REMICADE [Suspect]
     Indication: ANKYLOSING SPONDYLITIS
     Dosage: DOSE ALSO REPORTED AS 3MG/KG
     Route: 042
     Dates: start: 20061108, end: 20080601
  4. METHOTREXATE [Suspect]
     Indication: ANKYLOSING SPONDYLITIS
     Dosage: DOSE REPORTED AS 5-15MG/WEEK
     Route: 048
     Dates: start: 20020101, end: 20090101

REACTIONS (7)
  - ANKYLOSING SPONDYLITIS [None]
  - GASTROINTESTINAL DISORDER [None]
  - THERAPEUTIC RESPONSE DECREASED [None]
  - LIVER DISORDER [None]
  - BRONCHITIS [None]
  - MYELODYSPLASTIC SYNDROME [None]
  - SKIN REACTION [None]
